FAERS Safety Report 5963892-0 (Version None)
Quarter: 2008Q4

REPORT INFORMATION
  Report Type: 
  Country: None (occurrence: None)
  Receive Date: 20081124
  Receipt Date: 20081111
  Transmission Date: 20090506
  Serious: Yes (Hospitalization)
  Sender: FDA-Public Use
  Company Number: US-ROCHE-593959

PATIENT
  Age: 61 Year
  Sex: Female
  Weight: 55 kg

DRUGS (8)
  1. CAPECITABINE [Suspect]
     Dosage: FREQUENCY: 2500 MG BID D1-7 Q14D DRUG NAME REPORTED AS CAPECITABINE 500 MG AND 150 MG TABS - ROCHE.
     Route: 048
     Dates: start: 20081006, end: 20081012
  2. PHY906 [Suspect]
     Dosage: FREQUENCY: 800 MG BID D1-4 Q14D
     Route: 048
     Dates: start: 20081006, end: 20081009
  3. PARENTERAL [Suspect]
     Indication: DRUG USE FOR UNKNOWN INDICATION
     Dosage: DRUG NAME REPORTED AS TOTAL PARENTERAL NUTRITION.
     Route: 042
     Dates: start: 20080601
  4. NEXIUM [Concomitant]
     Route: 048
  5. VITAMIN B6 [Concomitant]
     Route: 048
  6. OMEGA 3 + E [Concomitant]
     Dosage: DRUG NAME REPORTED AS OMEGA - 3.
  7. COLACE [Concomitant]
     Dosage: FREQUENCY REPORTED AS BID PRN.
     Route: 048
  8. MIRALAX [Concomitant]

REACTIONS (5)
  - ALANINE AMINOTRANSFERASE INCREASED [None]
  - BILE DUCT STENOSIS [None]
  - BLOOD BILIRUBIN INCREASED [None]
  - HYPERCALCAEMIA [None]
  - HYPONATRAEMIA [None]
